FAERS Safety Report 9798798 (Version 1)
Quarter: 2014Q1

REPORT INFORMATION
  Report Type: Spontaneous
  Country: US (occurrence: US)
  Receive Date: 20140106
  Receipt Date: 20140106
  Transmission Date: 20141002
  Serious: No
  Sender: FDA-Public Use
  Company Number: US-GILEAD-2010-0032265

PATIENT
  Age: 61 Year
  Sex: Female

DRUGS (9)
  1. LETAIRIS [Suspect]
     Indication: PULMONARY ARTERIAL HYPERTENSION
     Route: 048
     Dates: start: 20100810
  2. REVATIO [Concomitant]
  3. LIPITOR [Concomitant]
  4. FUROSEMIDE [Concomitant]
  5. WARFARIN [Concomitant]
  6. OXYGEN [Concomitant]
  7. JANUMET [Concomitant]
  8. INSULIN NOVOLOG [Concomitant]
  9. INSULIN LANTUS [Concomitant]

REACTIONS (1)
  - Oedema [Unknown]
